FAERS Safety Report 5629756-7 (Version None)
Quarter: 2008Q1

REPORT INFORMATION
  Report Type: 
  Country: None (occurrence: None)
  Receive Date: 20080218
  Receipt Date: 20080207
  Transmission Date: 20080703
  Serious: Yes (Life-Threatening)
  Sender: FDA-Public Use
  Company Number: JP-MERCK-0712USA08154

PATIENT
  Age: 70 Year
  Sex: Male

DRUGS (8)
  1. FOSAMAX [Suspect]
     Indication: OSTEOPOROSIS
     Route: 048
     Dates: start: 20070801, end: 20070925
  2. PREDONINE [Concomitant]
     Indication: INTERSTITIAL LUNG DISEASE
     Route: 048
     Dates: start: 20070601
  3. PANTOSIN [Concomitant]
     Indication: INTESTINAL OBSTRUCTION
     Route: 048
     Dates: start: 20060101
  4. ALINAMIN [Concomitant]
     Indication: INTESTINAL OBSTRUCTION
     Route: 048
     Dates: start: 20060101
  5. PRIMPERAN INJ [Concomitant]
     Indication: INTESTINAL OBSTRUCTION
     Route: 048
     Dates: start: 20060101
  6. CYANOCOBALAMIN [Concomitant]
     Indication: NEUROPATHY PERIPHERAL
     Route: 048
     Dates: start: 20060801
  7. ASTOMIN [Concomitant]
     Indication: COUGH
     Route: 048
     Dates: start: 20070911
  8. LAXOBERON [Concomitant]
     Indication: CONSTIPATION
     Route: 048

REACTIONS (1)
  - INTERSTITIAL LUNG DISEASE [None]
